FAERS Safety Report 8321591-4 (Version None)
Quarter: 2012Q2

REPORT INFORMATION
  Report Type: 
  Country: None (occurrence: None)
  Receive Date: 20120430
  Receipt Date: 20091019
  Transmission Date: 20120825
  Serious: No
  Sender: FDA-Public Use
  Company Number: US-TEVA-2009011646

PATIENT
  Sex: Female
  Weight: 63.56 kg

DRUGS (16)
  1. PREDNISONE [Concomitant]
     Indication: RHEUMATOID ARTHRITIS
     Dates: start: 20050101
  2. REMICADE [Concomitant]
     Dates: start: 20050101
  3. METHOTREXATE [Concomitant]
     Indication: RHEUMATOID ARTHRITIS
     Dates: start: 20050101
  4. NABUMETONE [Concomitant]
     Indication: RHEUMATOID ARTHRITIS
     Dates: start: 20050101
  5. FOLIC ACID [Concomitant]
  6. VICODIN [Concomitant]
     Dates: start: 20050101
  7. ASPIRIN [Concomitant]
     Dates: start: 20080101
  8. POTASSIUM GLUCONATE TAB [Concomitant]
     Dates: start: 20050101
  9. MULTIPLE VITAMINS [Concomitant]
  10. TOVIAZ [Concomitant]
     Indication: BLADDER SPASM
     Dates: start: 20090901
  11. ULTRAM [Concomitant]
     Indication: INTERVERTEBRAL DISC PROTRUSION
     Dates: start: 20070101
  12. NORVASC [Concomitant]
     Indication: HYPERTENSION
     Dates: start: 20050101
  13. COZAAR [Concomitant]
     Indication: HYPERTENSION
     Dates: start: 20081001
  14. TRAMADOL [Concomitant]
     Dates: start: 20070101
  15. NUVIGIL [Suspect]
     Indication: SLEEP APNOEA SYNDROME
     Dosage: 150 MILLIGRAM;
     Route: 048
     Dates: start: 20091008
  16. VITAMIN D [Concomitant]

REACTIONS (1)
  - DRY MOUTH [None]
